FAERS Safety Report 15480395 (Version 2)
Quarter: 2018Q4

REPORT INFORMATION
  Report Type: Spontaneous
  Country: US (occurrence: US)
  Receive Date: 20181009
  Receipt Date: 20181121
  Transmission Date: 20190205
  Serious: No
  Sender: FDA-Public Use
  Company Number: US-ASTRAZENECA-2018SF18310

PATIENT
  Age: 22396 Day
  Sex: Female

DRUGS (2)
  1. BYDUREON BCISE [Suspect]
     Active Substance: EXENATIDE
     Indication: WEIGHT DECREASED
     Route: 058
     Dates: start: 20180913
  2. VICTOZA [Concomitant]
     Active Substance: LIRAGLUTIDE
     Dosage: 7 TIMES A WEEK

REACTIONS (3)
  - Incorrect dose administered [Unknown]
  - Injection site scar [Unknown]
  - Injection site extravasation [Unknown]

NARRATIVE: CASE EVENT DATE: 20180913
